FAERS Safety Report 7124160-7 (Version None)
Quarter: 2010Q4

REPORT INFORMATION
  Report Type: 
  Country: None (occurrence: None)
  Receive Date: 20101126
  Receipt Date: 20101115
  Transmission Date: 20110411
  Serious: Yes (Other)
  Sender: FDA-Public Use
  Company Number: US-PFIZER INC-2010151620

PATIENT
  Sex: Female
  Weight: 86.168 kg

DRUGS (4)
  1. PRISTIQ [Suspect]
     Indication: ANXIETY
     Dosage: 50 MG, 1X/DAY
     Route: 048
     Dates: start: 20101111
  2. PRISTIQ [Suspect]
     Indication: SOMNOLENCE
  3. PRISTIQ [Suspect]
     Indication: ANGER
  4. PRISTIQ [Suspect]
     Indication: STRESS

REACTIONS (5)
  - ABDOMINAL PAIN [None]
  - EUPHORIC MOOD [None]
  - FATIGUE [None]
  - GAIT DISTURBANCE [None]
  - RECTAL HAEMORRHAGE [None]
